FAERS Safety Report 20685434 (Version 2)
Quarter: 2022Q2

REPORT INFORMATION
  Report Type: Spontaneous
  Country: US (occurrence: US)
  Receive Date: 20220407
  Receipt Date: 20220407
  Transmission Date: 20220721
  Serious: No
  Sender: FDA-Public Use
  Company Number: US-GALDERMA-US2022000736

PATIENT

DRUGS (2)
  1. SOOLANTRA [Suspect]
     Active Substance: IVERMECTIN
     Indication: Rosacea
     Dosage: 1 DOSAGE FORM, QD
     Route: 061
     Dates: start: 202109, end: 202109
  2. SOOLANTRA [Suspect]
     Active Substance: IVERMECTIN
     Dosage: 1 DOSAGE FORM, QD
     Route: 061
     Dates: start: 202111

REACTIONS (5)
  - Erythema [Recovered/Resolved]
  - Rash papular [Recovered/Resolved]
  - Condition aggravated [Recovered/Resolved]
  - Rosacea [Recovered/Resolved]
  - Drug ineffective [Not Recovered/Not Resolved]

NARRATIVE: CASE EVENT DATE: 20210901
